FAERS Safety Report 6167386-1 (Version None)
Quarter: 2009Q2

REPORT INFORMATION
  Report Type: 
  Country: None (occurrence: None)
  Receive Date: 20090424
  Receipt Date: 20090415
  Transmission Date: 20091009
  Serious: Yes (Hospitalization)
  Sender: FDA-Public Use
  Company Number: FR-ABBOTT-09P-056-0568607-00

PATIENT
  Age: 81 Year
  Sex: Male

DRUGS (9)
  1. ODRIK [Interacting]
     Indication: HYPERTENSION
     Route: 048
  2. PREVISCAN [Interacting]
     Indication: PHLEBITIS
     Dates: start: 20080201, end: 20081101
  3. PREVISCAN [Interacting]
     Dates: start: 20081201, end: 20090201
  4. AMOXICILLIN [Suspect]
     Indication: LYMPHANGITIS
     Route: 048
     Dates: start: 20090117, end: 20090207
  5. PYOSTACINE [Interacting]
     Indication: LYMPHANGITIS
     Dates: start: 20090105, end: 20090131
  6. AMLODIPINE BESYLATE [Interacting]
     Indication: HYPERTENSION
     Route: 048
     Dates: end: 20090201
  7. EZTEROL [Interacting]
     Indication: DYSLIPIDAEMIA
     Route: 048
     Dates: end: 20090201
  8. CARDENSIEL [Concomitant]
     Indication: HYPERTENSION
  9. PARACETAMOL [Concomitant]
     Indication: DRUG USE FOR UNKNOWN INDICATION

REACTIONS (4)
  - DRUG INTERACTION [None]
  - HEPATITIS CHOLESTATIC [None]
  - JAUNDICE [None]
  - PRURITUS [None]
